FAERS Safety Report 7270475-1 (Version None)
Quarter: 2011Q1

REPORT INFORMATION
  Report Type: 
  Country: None (occurrence: None)
  Receive Date: 20110202
  Receipt Date: 20110126
  Transmission Date: 20110831
  Serious: Yes (Hospitalization, Disabling)
  Sender: FDA-Public Use
  Company Number: GB-MERCK-1101USA03011

PATIENT
  Age: 59 Year
  Sex: Male

DRUGS (3)
  1. VELCADE [Suspect]
     Route: 042
  2. DECADRON [Suspect]
     Indication: MULTIPLE MYELOMA
     Dosage: ON THE DAY OF AND DAY AFTER EACH BORTEZOMIB INFUSION
     Route: 048
  3. VELCADE [Suspect]
     Route: 042
     Dates: start: 20060101

REACTIONS (1)
  - CHRONIC INFLAMMATORY DEMYELINATING POLYRADICULONEUROPATHY [None]
